FAERS Safety Report 8730763 (Version 2)
Quarter: 2012Q4

REPORT INFORMATION
  Report Type: 
  Country: FR (occurrence: FR)
  Receive Date: 20120818
  Receipt Date: 20120831
  Transmission Date: 20130627
  Serious: Yes (Hospitalization)
  Sender: FDA-Public Use
  Company Number: FR-BAXTER-2012BAX014045

PATIENT
  Age: 46 Year
  Sex: Male

DRUGS (19)
  1. ENDOXAN 1000 MG, POUDRE POUR SOLUTION INJECTABLE [Suspect]
     Indication: BURKITT^S LYMPHOMA STAGE IV
     Route: 042
     Dates: start: 20120521, end: 20120523
  2. MABTHERA [Suspect]
     Indication: BURKITT^S LYMPHOMA STAGE IV
     Route: 042
     Dates: start: 20120519, end: 20120519
  3. METHOTREXATE [Suspect]
     Indication: BURKITT^S LYMPHOMA STAGE IV
     Dosage: 3 g/m2
     Route: 042
     Dates: start: 20120520, end: 20120520
  4. METHOTREXATE [Suspect]
     Route: 037
     Dates: start: 20120521, end: 20120521
  5. METHOTREXATE [Suspect]
     Route: 037
     Dates: start: 20120525, end: 20120525
  6. CORTANCYL [Suspect]
     Indication: BURKITT^S LYMPHOMA STAGE IV
     Route: 048
     Dates: start: 20120520, end: 20120524
  7. VINCRISTINE [Suspect]
     Indication: BURKITT^S LYMPHOMA STAGE IV
     Dosage: 2 mg/2 mL
     Route: 042
     Dates: start: 20120520, end: 20120520
  8. VINCRISTINE [Suspect]
     Dosage: 2 mg/ 2 mL
     Route: 042
     Dates: start: 20120525, end: 20120525
  9. LEVOFOLINATE [Suspect]
     Indication: DRUG USE FOR UNKNOWN INDICATION
     Route: 042
     Dates: start: 20120521, end: 20120525
  10. DOXORUBICIN [Suspect]
     Indication: BURKITT^S LYMPHOMA STAGE IV
     Route: 042
     Dates: start: 20120521, end: 20120521
  11. CYTARABINE [Concomitant]
     Indication: DRUG USE FOR UNKNOWN INDICATION
     Route: 037
  12. BACTRIM FORTE [Concomitant]
     Indication: DRUG USE FOR UNKNOWN INDICATION
     Route: 048
  13. VALACICLOVIR [Concomitant]
     Indication: DRUG USE FOR UNKNOWN INDICATION
     Route: 048
  14. LYRICA [Concomitant]
     Indication: DRUG USE FOR UNKNOWN INDICATION
     Route: 065
  15. INEXIUM [Concomitant]
     Indication: DRUG USE FOR UNKNOWN INDICATION
     Route: 048
  16. EMEND [Concomitant]
     Indication: DRUG USE FOR UNKNOWN INDICATION
     Route: 048
  17. ONDANSETRON [Concomitant]
     Indication: DRUG USE FOR UNKNOWN INDICATION
     Route: 042
  18. ZYLORIC [Concomitant]
     Indication: DRUG USE FOR UNKNOWN INDICATION
     Route: 048
  19. CALCIPARINE [Concomitant]
     Indication: DRUG USE FOR UNKNOWN INDICATION
     Route: 058

REACTIONS (1)
  - Renal failure acute [Recovered/Resolved]
